FAERS Safety Report 4752597-X (Version None)
Quarter: 2005Q3

REPORT INFORMATION
  Report Type: 
  Country: None (occurrence: None)
  Receive Date: 20050825
  Receipt Date: 20050818
  Transmission Date: 20060218
  Serious: Yes (Other)
  Sender: FDA-Public Use
  Company Number: PHEH2005US09213

PATIENT
  Age: 63 Year
  Sex: Female

DRUGS (9)
  1. ZELNORM [Suspect]
     Indication: CONSTIPATION
     Dosage: 6 MG, BID
     Route: 048
     Dates: start: 20050721, end: 20050803
  2. FOSAMAX [Concomitant]
     Indication: OSTEOPOROSIS
  3. NEXIUM [Concomitant]
     Dosage: 40 MG, UNK
  4. MAXZIDE [Concomitant]
     Indication: HYPERTENSION
     Dosage: 25 MG, UNK
  5. HYDROCODONE [Concomitant]
     Dosage: 5/325
  6. NEURONTIN [Concomitant]
     Dosage: 1200 MG, UNK
  7. NAPROXEN [Concomitant]
     Dosage: 1100 UNK, UNK
  8. ZYRTEC [Concomitant]
     Indication: HYPERSENSITIVITY
     Dosage: 10 MG, UNK
  9. ESTRADIOL [Concomitant]
     Indication: HORMONE REPLACEMENT THERAPY
     Route: 061

REACTIONS (3)
  - ARTHRALGIA [None]
  - ASTHENIA [None]
  - DIARRHOEA [None]
